FAERS Safety Report 15354322 (Version 1)
Quarter: 2018Q3

REPORT INFORMATION
  Report Type: Spontaneous
  Country: BR (occurrence: BR)
  Receive Date: 20180906
  Receipt Date: 20180906
  Transmission Date: 20181010
  Serious: Yes (Life-Threatening, Hospitalization, Other)
  Sender: FDA-Public Use
  Company Number: PHHY2018BR091232

PATIENT
  Age: 71 Year
  Sex: Female

DRUGS (6)
  1. NILOTINIB [Suspect]
     Active Substance: NILOTINIB
     Dosage: 600 MG, QD
     Route: 065
  2. GLIVEC [Suspect]
     Active Substance: IMATINIB MESYLATE
     Dosage: 200 MG, UNK
     Route: 065
  3. GLIVEC [Suspect]
     Active Substance: IMATINIB MESYLATE
     Dosage: 400 MG, QD
     Route: 065
  4. NILOTINIB [Suspect]
     Active Substance: NILOTINIB
     Indication: CHRONIC MYELOID LEUKAEMIA
     Dosage: 600 MG, QD
     Route: 048
  5. GLIVEC [Suspect]
     Active Substance: IMATINIB MESYLATE
     Indication: CHRONIC MYELOID LEUKAEMIA
     Dosage: UNK
     Route: 065
     Dates: start: 201206
  6. NILOTINIB [Suspect]
     Active Substance: NILOTINIB
     Dosage: 400 MG, QD
     Route: 065

REACTIONS (16)
  - Lip ulceration [Unknown]
  - Mucosal inflammation [Unknown]
  - Leukopenia [Unknown]
  - Aphthous ulcer [Unknown]
  - Oral candidiasis [Unknown]
  - Haematotoxicity [Unknown]
  - Pallor [Unknown]
  - Mouth ulceration [Recovered/Resolved]
  - Chronic myeloid leukaemia [Unknown]
  - Malignant neoplasm progression [Unknown]
  - Thrombocytopenia [Recovered/Resolved]
  - Oral disorder [Not Recovered/Not Resolved]
  - Pain [Unknown]
  - Drug intolerance [Unknown]
  - Stomatitis [Recovering/Resolving]
  - Cytogenetic analysis abnormal [Unknown]
